FAERS Safety Report 13065134 (Version 1)
Quarter: 2016Q4

REPORT INFORMATION
  Report Type: Report from Study
  Country: BE (occurrence: BE)
  Receive Date: 20161227
  Receipt Date: 20161227
  Transmission Date: 20170207
  Serious: Yes (Other)
  Sender: FDA-Public Use
  Company Number: BE-ASCEND THERAPEUTICS-1061297

PATIENT
  Age: 53 Year
  Sex: Male

DRUGS (2)
  1. CYPROTERONE ACETATE [Concomitant]
     Active Substance: CYPROTERONE ACETATE
  2. ESTROGEL [Suspect]
     Active Substance: ESTRADIOL
     Indication: GENDER DYSPHORIA

REACTIONS (2)
  - Condition aggravated [Recovering/Resolving]
  - Meningioma [Recovering/Resolving]
